FAERS Safety Report 5269102-4 (Version None)
Quarter: 2007Q1

REPORT INFORMATION
  Report Type: 
  Country: None (occurrence: None)
  Receive Date: 20070319
  Receipt Date: 20070311
  Transmission Date: 20070707
  Serious: Yes (Hospitalization)
  Sender: FDA-Public Use
  Company Number: GB-ROCHE-487726

PATIENT
  Age: 38 Year
  Sex: Female
  Weight: 117 kg

DRUGS (3)
  1. XENICAL [Suspect]
     Indication: OBESITY
     Route: 048
     Dates: start: 20070103
  2. METFORMIN [Concomitant]
     Indication: POLYCYSTIC OVARIES
     Route: 048
     Dates: start: 20060315
  3. PROVERA [Concomitant]
     Route: 048
     Dates: end: 20060215

REACTIONS (1)
  - UTERINE DISORDER [None]
